FAERS Safety Report 16445867 (Version 2)
Quarter: 2019Q2

REPORT INFORMATION
  Report Type: Spontaneous
  Country: US (occurrence: US)
  Receive Date: 20190618
  Receipt Date: 20190626
  Transmission Date: 20190711
  Serious: Yes (Other)
  Sender: FDA-Public Use
  Company Number: US-GLENMARK PHARMACEUTICALS-2019GMK041656

PATIENT

DRUGS (1)
  1. IMIQUIMOD CREAM USP, 5% [Suspect]
     Active Substance: IMIQUIMOD
     Indication: PRECANCEROUS SKIN LESION
     Dosage: UNK (APPLY THE PRODUCT THROUGHOUT THE DAY)
     Route: 065
     Dates: end: 20190606

REACTIONS (9)
  - Precancerous skin lesion [Unknown]
  - Oral discomfort [Recovering/Resolving]
  - Product use issue [Unknown]
  - Lip blister [Recovering/Resolving]
  - Lip erythema [Recovering/Resolving]
  - Scab [Recovering/Resolving]
  - Aphthous ulcer [Recovering/Resolving]
  - Fatigue [Recovering/Resolving]
  - Disease progression [Unknown]
